FAERS Safety Report 22521356 (Version 1)
Quarter: 2023Q2

REPORT INFORMATION
  Report Type: Spontaneous
  Country: US (occurrence: None)
  Receive Date: 20230605
  Receipt Date: 20230605
  Transmission Date: 20230722
  Serious: Yes (Other)
  Sender: FDA-Public Use
  Company Number: None

PATIENT
  Age: 66 Year
  Sex: Female
  Weight: 85.5 kg

DRUGS (3)
  1. RINVOQ [Suspect]
     Active Substance: UPADACITINIB
     Indication: Skin disorder
     Dosage: OTHER QUANTITY : 14 TABLET(S);?
     Route: 048
     Dates: start: 20230502, end: 20230515
  2. PROTONIX [Concomitant]
     Active Substance: PANTOPRAZOLE SODIUM
  3. Super B Complex Fiber capsule [Concomitant]

REACTIONS (1)
  - Cough [None]

NARRATIVE: CASE EVENT DATE: 20230502
